FAERS Safety Report 18826996 (Version 1)
Quarter: 2021Q1

REPORT INFORMATION
  Report Type: Spontaneous
  Country: CN (occurrence: CN)
  Receive Date: 20210202
  Receipt Date: 20210202
  Transmission Date: 20210419
  Serious: Yes (Other)
  Sender: FDA-Public Use
  Company Number: CN-009507513-2102CHN000642

PATIENT
  Age: 72 Year
  Sex: Male

DRUGS (1)
  1. SINGULAIR [Suspect]
     Active Substance: MONTELUKAST SODIUM
     Indication: CHRONIC OBSTRUCTIVE PULMONARY DISEASE
     Dosage: 10 MILLIGRAM, HS (REPORTED AS ^10 MG, QN^)
     Route: 048
     Dates: start: 20210117, end: 20210122

REACTIONS (4)
  - Neurodegenerative disorder [Unknown]
  - Lacunar infarction [Unknown]
  - Disorganised speech [Recovered/Resolved]
  - Product use in unapproved indication [Unknown]

NARRATIVE: CASE EVENT DATE: 20210117
